FAERS Safety Report 17173371 (Version 1)
Quarter: 2019Q4

REPORT INFORMATION
  Report Type: Spontaneous
  Country: US (occurrence: US)
  Receive Date: 20191218
  Receipt Date: 20191218
  Transmission Date: 20200122
  Serious: Yes (Other)
  Sender: FDA-Public Use
  Company Number: None

PATIENT
  Age: 57 Year
  Sex: Male
  Weight: 99 kg

DRUGS (3)
  1. ASPIRIN 81MG [Concomitant]
     Active Substance: ASPIRIN
  2. CLONIDINE .1MG [Concomitant]
     Active Substance: CLONIDINE HYDROCHLORIDE
  3. FEBUXOSTAT. [Suspect]
     Active Substance: FEBUXOSTAT
     Indication: GOUT
     Dosage: ?          QUANTITY:1 TABLET(S);?
     Route: 048
     Dates: start: 20191215, end: 20191218

REACTIONS (3)
  - Headache [None]
  - Pain in jaw [None]
  - Pain in extremity [None]

NARRATIVE: CASE EVENT DATE: 20191217
